FAERS Safety Report 9245174 (Version 2)
Quarter: 2013Q2

REPORT INFORMATION
  Report Type: Spontaneous
  Country: US (occurrence: US)
  Receive Date: 20130422
  Receipt Date: 20130501
  Transmission Date: 20140414
  Serious: Yes (Hospitalization, Other)
  Sender: FDA-Public Use
  Company Number: US-SHIRE-ALL1-2013-02446

PATIENT
  Age: 14 Year
  Sex: Female

DRUGS (3)
  1. VYVANSE [Suspect]
     Indication: PRODUCT USED FOR UNKNOWN INDICATION
     Dosage: UNK, UNKNOWN
     Route: 048
     Dates: start: 200905
  2. OTHER ANTI-ACNE PREPARATIONS FOR SYSTEMIC USE [Concomitant]
     Indication: ACNE
     Dosage: UNK, UNKNOWN
     Route: 065
  3. OTHER RESPIRATORY SYSTEM PRODUCTS [Concomitant]
     Indication: RESPIRATORY DISORDER
     Dosage: UNK, UNKNOWN
     Route: 065

REACTIONS (1)
  - Suicidal ideation [Unknown]
